FAERS Safety Report 25063985 (Version 1)
Quarter: 2025Q1

REPORT INFORMATION
  Report Type: Spontaneous
  Country: US (occurrence: US)
  Receive Date: 20250311
  Receipt Date: 20250311
  Transmission Date: 20250409
  Serious: No
  Sender: TAKEDA
  Company Number: US-TAKEDA-2025TUS022751

PATIENT
  Sex: Male
  Weight: 79.37 kg

DRUGS (1)
  1. ENTYVIO [Suspect]
     Active Substance: VEDOLIZUMAB
     Indication: Crohn^s disease
     Dosage: UNK, Q6WEEKS
     Dates: start: 1999, end: 202411

REACTIONS (3)
  - No adverse event [Unknown]
  - Product dose omission issue [Unknown]
  - Off label use [Unknown]
